FAERS Safety Report 20605551 (Version 1)
Quarter: 2022Q1

REPORT INFORMATION
  Report Type: Spontaneous
  Country: US (occurrence: US)
  Receive Date: 20220317
  Receipt Date: 20220317
  Transmission Date: 20220423
  Serious: No
  Sender: FDA-Public Use
  Company Number: US-EIGER BIOPHARMACEUTICALS-EIG-2022-000001

PATIENT
  Sex: Female

DRUGS (1)
  1. ZOKINVY [Suspect]
     Active Substance: LONAFARNIB
     Indication: Progeria
     Dosage: 75 MG
     Route: 065
     Dates: start: 20210211

REACTIONS (2)
  - Abdominal pain upper [Unknown]
  - Product dose omission issue [Unknown]
